FAERS Safety Report 8313970-6 (Version None)
Quarter: 2012Q2

REPORT INFORMATION
  Report Type: 
  Country: None (occurrence: None)
  Receive Date: 20120426
  Receipt Date: 20120418
  Transmission Date: 20120825
  Serious: Yes (Other)
  Sender: FDA-Public Use
  Company Number: US-BAYER-2012-039165

PATIENT
  Age: 32 Year
  Sex: Female
  Weight: 133 kg

DRUGS (10)
  1. ADIPEX [Concomitant]
     Dosage: UNK
     Dates: start: 20060501
  2. GLUCOPHAGE [Concomitant]
     Dosage: 500 MG,DAILY
     Dates: start: 20060501
  3. SPIRONOLACTONE [Concomitant]
     Dosage: 25 MG, DAILY
     Dates: start: 20060501
  4. YASMIN [Suspect]
  5. LEVOXYL [Concomitant]
     Dosage: UNK
     Dates: start: 20040701
  6. CALCIUM CARBONATE [Concomitant]
     Dosage: UNK
     Dates: start: 20040301
  7. PEPTO OTC [Concomitant]
  8. ASPIRIN [Concomitant]
     Dosage: UNK
     Dates: start: 20060701
  9. WELLBUTRIN [Concomitant]
     Dosage: UNK
     Dates: start: 20040701
  10. LEXAPRO [Concomitant]
     Indication: DEPRESSION
     Dosage: 10 MG, QD
     Dates: start: 20030101, end: 20051001

REACTIONS (3)
  - DEEP VEIN THROMBOSIS [None]
  - THROMBOPHLEBITIS SUPERFICIAL [None]
  - CHOLECYSTITIS CHRONIC [None]
